FAERS Safety Report 15187801 (Version 2)
Quarter: 2018Q4

REPORT INFORMATION
  Report Type: Spontaneous
  Country: CH (occurrence: CH)
  Receive Date: 20180724
  Receipt Date: 20181128
  Transmission Date: 20190204
  Serious: Yes (Death, Other)
  Sender: FDA-Public Use
  Company Number: CH-ROCHE-2159179

PATIENT
  Sex: Male

DRUGS (1)
  1. LUCENTIS [Suspect]
     Active Substance: RANIBIZUMAB
     Indication: NEOVASCULAR AGE-RELATED MACULAR DEGENERATION
     Dosage: UNK
     Route: 065
     Dates: start: 201603

REACTIONS (4)
  - Chronic disease [Fatal]
  - Retinal drusen [Unknown]
  - Eye haemorrhage [Unknown]
  - Subretinal fluid [Unknown]

NARRATIVE: CASE EVENT DATE: 20161117
